FAERS Safety Report 8943542 (Version 2)
Quarter: 2012Q4

REPORT INFORMATION
  Report Type: 
  Country: BR (occurrence: BR)
  Receive Date: 20121203
  Receipt Date: 20121217
  Transmission Date: 20130627
  Serious: Yes (Other)
  Sender: FDA-Public Use
  Company Number: PHHY2012BR105114

PATIENT
  Age: 66 Year
  Sex: Female

DRUGS (6)
  1. LUDIOMIL [Suspect]
     Indication: DEPRESSION
     Dosage: 1 DF (50 mg), daily
     Route: 048
  2. LUDIOMIL [Suspect]
     Dosage: 2 DF (25 mg), daily
     Route: 048
  3. LUDIOMIL [Suspect]
     Dosage: 2 DF (25 mg), every other day
     Route: 048
  4. NORTRIPTYLINE [Suspect]
     Dosage: UNK UKN, UNK
  5. MAPROTILINE [Suspect]
  6. CYMBALTA [Suspect]
     Indication: CRYING
     Dosage: 1 DF, daily

REACTIONS (11)
  - Varicose vein [Unknown]
  - Liver disorder [Unknown]
  - Pain in extremity [Unknown]
  - Feeling abnormal [Unknown]
  - Depressed mood [Recovered/Resolved]
  - Headache [Recovered/Resolved]
  - Anxiety [Not Recovered/Not Resolved]
  - Nightmare [Unknown]
  - Dysgeusia [Unknown]
  - Chest pain [Not Recovered/Not Resolved]
  - Drug intolerance [Not Recovered/Not Resolved]
